FAERS Safety Report 10171218 (Version 1)
Quarter: 2014Q2

REPORT INFORMATION
  Report Type: Spontaneous
  Country: GB (occurrence: None)
  Receive Date: 20140512
  Receipt Date: 20140512
  Transmission Date: 20141212
  Serious: Yes (Congenital Anomaly)
  Sender: FDA-Public Use
  Company Number: IMP_07633_2014

PATIENT
  Sex: Male
  Weight: 3.5 kg

DRUGS (1)
  1. SODIUM VALPROATE (SODIUM VALPROATE) [Suspect]
     Indication: MATERNAL EXPOSURE TIMING UNSPECIFIED
     Dosage: 1600MG (DAILY IN TWO DIVIDED DOSES) TRANSPLACENTAL
     Route: 064

REACTIONS (12)
  - Foetal exposure during pregnancy [None]
  - Foetal anticonvulsant syndrome [None]
  - Torticollis [None]
  - Hypospadias [None]
  - Inguinal hernia [None]
  - Coloboma [None]
  - Congenital myopathy [None]
  - Small for dates baby [None]
  - Motor developmental delay [None]
  - Learning disorder [None]
  - Otitis media [None]
  - Eye disorder [None]
